FAERS Safety Report 20118882 (Version 1)
Quarter: 2021Q4

REPORT INFORMATION
  Report Type: Report from Study
  Country: US (occurrence: US)
  Receive Date: 20211126
  Receipt Date: 20211126
  Transmission Date: 20220304
  Serious: Yes (Other)
  Sender: FDA-Public Use
  Company Number: US-UCBSA-2021054210

PATIENT
  Age: 77 Year
  Sex: Female

DRUGS (2)
  1. LACOSAMIDE [Suspect]
     Active Substance: LACOSAMIDE
     Indication: Seizure
     Dosage: 100 MILLIGRAM, 2X/DAY (BID)
  2. CEPHALEXIN [Concomitant]
     Active Substance: CEPHALEXIN
     Indication: Cystitis

REACTIONS (4)
  - Vaginal prolapse repair [Not Recovered/Not Resolved]
  - Vaginal prolapse [Not Recovered/Not Resolved]
  - Anal prolapse [Not Recovered/Not Resolved]
  - Cystitis [Not Recovered/Not Resolved]

NARRATIVE: CASE EVENT DATE: 20211108
